FAERS Safety Report 9231217 (Version 1)
Quarter: 2013Q2

REPORT INFORMATION
  Report Type: Spontaneous
  Country: DE (occurrence: DK)
  Receive Date: 20130415
  Receipt Date: 20130415
  Transmission Date: 20140414
  Serious: Yes (Hospitalization)
  Sender: FDA-Public Use
  Company Number: DK-FRI-1000044264

PATIENT
  Age: 67 Year
  Sex: 0
  Weight: 55 kg

DRUGS (5)
  1. ROFLUMILAST [Suspect]
     Indication: CHRONIC OBSTRUCTIVE PULMONARY DISEASE
     Dates: start: 20101007, end: 20101107
  2. SPIRIVA [Concomitant]
  3. TURBUHALAR SYMMICORT FORTE [Concomitant]
  4. ZITROMAX [Concomitant]
  5. PREDNISOLONE [Concomitant]

REACTIONS (3)
  - Chest pain [Unknown]
  - Nausea [Unknown]
  - Vomiting [Unknown]
